FAERS Safety Report 25593482 (Version 1)
Quarter: 2025Q3

REPORT INFORMATION
  Report Type: Spontaneous
  Country: US (occurrence: US)
  Receive Date: 20250722
  Receipt Date: 20250722
  Transmission Date: 20251021
  Serious: Yes (Death, Other)
  Sender: MALLINCKRODT
  Company Number: US-MALLINCKRODT-MNK202504448

PATIENT
  Age: 55 Year
  Sex: Male

DRUGS (6)
  1. NITRIC OXIDE [Suspect]
     Active Substance: NITRIC OXIDE
     Indication: Pulmonary arterial hypertension
     Route: 055
  2. REMODULIN [Concomitant]
     Active Substance: TREPROSTINIL
     Route: 058
  3. TREPROSTINIL [Concomitant]
     Active Substance: TREPROSTINIL
     Route: 042
  4. AMBRISENTAN [Concomitant]
     Active Substance: AMBRISENTAN
  5. VELETRI [Concomitant]
     Active Substance: EPOPROSTENOL
     Route: 055
  6. IMATINIB [Concomitant]
     Active Substance: IMATINIB
     Indication: Pulmonary veno-occlusive disease

REACTIONS (5)
  - Pulmonary arterial hypertension [Fatal]
  - Shock [Fatal]
  - Condition aggravated [Fatal]
  - Hypoxia [Unknown]
  - Product use issue [Unknown]
